FAERS Safety Report 12761826 (Version 4)
Quarter: 2017Q1

REPORT INFORMATION
  Report Type: Spontaneous
  Country: US (occurrence: US)
  Receive Date: 20160920
  Receipt Date: 20170123
  Transmission Date: 20170428
  Serious: No
  Sender: FDA-Public Use
  Company Number: US-PFIZER INC-2016435374

PATIENT
  Age: 81 Year
  Sex: Female
  Weight: 61 kg

DRUGS (6)
  1. CELEBREX [Suspect]
     Active Substance: CELECOXIB
     Indication: ARTHRITIS
     Dosage: 100 MG, DAILY
  2. CELECOXIB. [Suspect]
     Active Substance: CELECOXIB
     Dosage: 2 DF, DAILY
  3. VENTOLIN [Concomitant]
     Active Substance: ALBUTEROL SULFATE
     Indication: ASTHMA
     Dosage: INHALER
  4. CELEBREX [Suspect]
     Active Substance: CELECOXIB
     Indication: RHEUMATOID ARTHRITIS
  5. CELECOXIB. [Suspect]
     Active Substance: CELECOXIB
     Dosage: 100 MG, DAILY
  6. CELECOXIB. [Suspect]
     Active Substance: CELECOXIB
     Indication: ARTHRITIS
     Dosage: UNK, 1X/DAY IN THE MORNING

REACTIONS (5)
  - Drug administration error [Unknown]
  - Condition aggravated [Not Recovered/Not Resolved]
  - Product size issue [Unknown]
  - Intentional product misuse [Unknown]
  - Dysphagia [Unknown]
